FAERS Safety Report 6806257-1 (Version None)
Quarter: 2010Q2

REPORT INFORMATION
  Report Type: 
  Country: None (occurrence: None)
  Receive Date: 20100629
  Receipt Date: 20080131
  Transmission Date: 20101027
  Serious: No
  Sender: FDA-Public Use
  Company Number: US-PFIZER INC-2008009047

PATIENT
  Sex: Male
  Weight: 78.2 kg

DRUGS (10)
  1. VIAGRA [Suspect]
     Indication: ERECTILE DYSFUNCTION
     Dates: start: 20070101
  2. VALIUM [Concomitant]
  3. SOMA [Concomitant]
  4. MORPHINE [Concomitant]
  5. HYDROCODONE [Concomitant]
  6. FOLIC ACID [Concomitant]
  7. HUMIRA [Concomitant]
  8. MULTI-VITAMINS [Concomitant]
  9. VITAMIN C [Concomitant]
  10. CALCIUM CARBONATE [Concomitant]

REACTIONS (4)
  - DRUG INEFFECTIVE [None]
  - ERECTILE DYSFUNCTION [None]
  - PAIN [None]
  - SENSORY LOSS [None]
